FAERS Safety Report 24963874 (Version 1)
Quarter: 2025Q1

REPORT INFORMATION
  Report Type: Report from Study
  Country: CA (occurrence: CA)
  Receive Date: 20250213
  Receipt Date: 20250213
  Transmission Date: 20250409
  Serious: Yes (Other)
  Sender: JOHNSON AND JOHNSON
  Company Number: CA-JNJFOC-20250209277

PATIENT
  Age: 68 Year
  Sex: Male

DRUGS (1)
  1. TREMFYA [Suspect]
     Active Substance: GUSELKUMAB
     Indication: Psoriasis
     Route: 058
     Dates: start: 20170917

REACTIONS (3)
  - Pneumonia [Unknown]
  - Bladder cancer [Unknown]
  - Skin laceration [Unknown]

NARRATIVE: CASE EVENT DATE: 20250101
